FAERS Safety Report 12152968 (Version 1)
Quarter: 2016Q1

REPORT INFORMATION
  Report Type: Spontaneous
  Country: US (occurrence: US)
  Receive Date: 20160305
  Receipt Date: 20160305
  Transmission Date: 20160526
  Serious: Yes (Other)
  Sender: FDA-Public Use
  Company Number: US-SUN PHARMACEUTICAL INDUSTRIES LTD-2015SUN00625

PATIENT

DRUGS (5)
  1. METOPROLOL TARTRATE 25MG TABLET [Suspect]
     Active Substance: METOPROLOL TARTRATE
     Indication: ATRIAL FIBRILLATION
     Dosage: 1 DF, BID
     Route: 048
     Dates: start: 201501, end: 20150312
  2. METOPROLOL TARTRATE 25MG TABLET [Suspect]
     Active Substance: METOPROLOL TARTRATE
     Indication: VENTRICULAR FIBRILLATION
     Dosage: 0.5 DF (HALF TAB), BID
     Route: 048
     Dates: start: 201411, end: 201501
  3. TRIAMTERENE. [Concomitant]
     Active Substance: TRIAMTERENE
     Indication: ARTHRALGIA
  4. TRIAMTERENE. [Concomitant]
     Active Substance: TRIAMTERENE
     Indication: JOINT SWELLING
  5. ACYCLOVIR. [Concomitant]
     Active Substance: ACYCLOVIR
     Indication: NASAL DISCOMFORT

REACTIONS (6)
  - Hypoaesthesia oral [Not Recovered/Not Resolved]
  - Asthenia [Not Recovered/Not Resolved]
  - Muscular weakness [Not Recovered/Not Resolved]
  - Body temperature decreased [Not Recovered/Not Resolved]
  - Skin discolouration [Not Recovered/Not Resolved]
  - Peripheral coldness [Not Recovered/Not Resolved]

NARRATIVE: CASE EVENT DATE: 201501
